FAERS Safety Report 10551480 (Version 3)
Quarter: 2014Q4

REPORT INFORMATION
  Report Type: Spontaneous
  Country: US (occurrence: US)
  Receive Date: 20141029
  Receipt Date: 20141229
  Transmission Date: 20150529
  Serious: Yes (Other)
  Sender: FDA-Public Use
  Company Number: US-JNJFOC-20140800038

PATIENT
  Age: 35 Year
  Sex: Female
  Weight: 60.96 kg

DRUGS (1)
  1. REMICADE [Suspect]
     Active Substance: INFLIXIMAB
     Indication: CROHN^S DISEASE
     Route: 042
     Dates: start: 201202

REACTIONS (11)
  - Mental disorder [Unknown]
  - Hypotension [Unknown]
  - Heart rate decreased [Unknown]
  - Diarrhoea [Unknown]
  - Irritability [Unknown]
  - Feeling abnormal [Unknown]
  - Drug ineffective [Unknown]
  - Intestinal stenosis [Unknown]
  - Fistula [Unknown]
  - Fatigue [Unknown]
  - Abdominal pain [Unknown]

NARRATIVE: CASE EVENT DATE: 20140730
